FAERS Safety Report 10648916 (Version 3)
Quarter: 2015Q1

REPORT INFORMATION
  Report Type: Report from Study
  Country: US (occurrence: US)
  Receive Date: 20141212
  Receipt Date: 20150107
  Transmission Date: 20150720
  Serious: Yes (Other)
  Sender: FDA-Public Use
  Company Number: US-JNJFOC-20141204577

PATIENT
  Age: 66 Year
  Sex: Female
  Weight: 122.93 kg

DRUGS (1)
  1. STELARA [Suspect]
     Active Substance: USTEKINUMAB
     Indication: PSORIASIS
     Route: 058
     Dates: end: 20141016

REACTIONS (1)
  - Anal cancer [Recovering/Resolving]

NARRATIVE: CASE EVENT DATE: 20141016
